FAERS Safety Report 6781397-4 (Version None)
Quarter: 2010Q2

REPORT INFORMATION
  Report Type: 
  Country: None (occurrence: None)
  Receive Date: 20100621
  Receipt Date: 20100511
  Transmission Date: 20101027
  Serious: Yes (Hospitalization)
  Sender: FDA-Public Use
  Company Number: DE-SANOFI-AVENTIS-2010SA027196

PATIENT
  Age: 82 Year
  Sex: Male
  Weight: 73 kg

DRUGS (9)
  1. MULTAQ [Suspect]
     Route: 048
     Dates: start: 20100414, end: 20100511
  2. RAMIPRIL [Concomitant]
     Route: 048
     Dates: start: 20100414
  3. BISOPROLOL [Concomitant]
     Route: 048
     Dates: start: 20100414
  4. BISOPROLOL [Concomitant]
     Indication: ATRIAL FIBRILLATION
     Route: 048
     Dates: start: 20100414
  5. TORSEMIDE [Concomitant]
     Route: 048
     Dates: start: 20100414
  6. TAMSULOSIN HCL [Concomitant]
     Route: 048
     Dates: start: 20100414
  7. KALINOR RETARD [Concomitant]
     Route: 048
     Dates: start: 20100414
  8. MAGNESIUM [Concomitant]
     Route: 048
     Dates: start: 20100414
  9. MARCUMAR [Concomitant]
     Dosage: ACCORDING TO INR ABOUT 1/4 TABLET DAILY
     Route: 048
     Dates: start: 20100414

REACTIONS (6)
  - ALANINE AMINOTRANSFERASE INCREASED [None]
  - ASPARTATE AMINOTRANSFERASE INCREASED [None]
  - BLOOD ALKALINE PHOSPHATASE INCREASED [None]
  - BLOOD CREATINE INCREASED [None]
  - GAMMA-GLUTAMYLTRANSFERASE INCREASED [None]
  - VOMITING [None]
